FAERS Safety Report 6096305-1 (Version None)
Quarter: 2009Q1

REPORT INFORMATION
  Report Type: 
  Country: None (occurrence: None)
  Receive Date: 20090227
  Receipt Date: 20081209
  Transmission Date: 20090719
  Serious: No
  Sender: FDA-Public Use
  Company Number: A0755200A

PATIENT
  Age: 56 Year
  Sex: Male

DRUGS (4)
  1. LAMICTAL [Suspect]
     Indication: EPILEPSY
     Dosage: 100MG THREE TIMES PER DAY
     Route: 048
     Dates: start: 19990101
  2. FISH OIL [Concomitant]
  3. VITAMINS [Concomitant]
  4. IBUPROFEN [Concomitant]

REACTIONS (14)
  - CARPAL TUNNEL SYNDROME [None]
  - DISORIENTATION [None]
  - DISTURBANCE IN ATTENTION [None]
  - EPISTAXIS [None]
  - EYE PAIN [None]
  - GENITAL RASH [None]
  - LIBIDO DECREASED [None]
  - MEMORY IMPAIRMENT [None]
  - OSTEOARTHRITIS [None]
  - PRURITUS [None]
  - RETINAL TEAR [None]
  - SINUSITIS [None]
  - SLEEP APNOEA SYNDROME [None]
  - VISION BLURRED [None]
